FAERS Safety Report 9405498 (Version 1)
Quarter: 2013Q3

REPORT INFORMATION
  Report Type: Spontaneous
  Country: FR (occurrence: FR)
  Receive Date: 20130717
  Receipt Date: 20130717
  Transmission Date: 20140515
  Serious: Yes (Other)
  Sender: FDA-Public Use
  Company Number: FR-WATSON-2013-12249

PATIENT
  Sex: Male

DRUGS (2)
  1. TRELSTAR (WATSON LABORATORIES) [Suspect]
     Indication: PARAPHILIA
     Dosage: 11.25 MG, EVERY 10 WEEKS
     Route: 030
     Dates: start: 20111012
  2. TRELSTAR (WATSON LABORATORIES) [Suspect]
     Dosage: 11.25 MG, EVERY 12 WEEKS
     Route: 030
     Dates: start: 20110214

REACTIONS (1)
  - Drug effect decreased [Unknown]
